FAERS Safety Report 7485549-X (Version None)
Quarter: 2011Q2

REPORT INFORMATION
  Report Type: 
  Country: None (occurrence: None)
  Receive Date: 20110517
  Receipt Date: 20101227
  Transmission Date: 20111010
  Serious: No
  Sender: FDA-Public Use
  Company Number: US-BAYER-2010-008461

PATIENT
  Age: 86 Year
  Sex: Male
  Weight: 66 kg

DRUGS (4)
  1. ATENOLOL [Concomitant]
  2. OMEPRAZOLE [Concomitant]
  3. ALEVE [Suspect]
     Indication: BACK PAIN
     Dosage: 220 MG, TID
     Route: 048
     Dates: start: 20101220, end: 20101223
  4. ASPIRIN [Concomitant]
     Dosage: 81 MG, UNK

REACTIONS (1)
  - DYSPNOEA [None]
